FAERS Safety Report 9626572 (Version 1)
Quarter: 2013Q4

REPORT INFORMATION
  Report Type: Spontaneous
  Country: US (occurrence: US)
  Receive Date: 20131016
  Receipt Date: 20131016
  Transmission Date: 20140711
  Serious: No
  Sender: FDA-Public Use
  Company Number: US-009507513-1309USA007288

PATIENT
  Age: 37 Year
  Sex: Male

DRUGS (5)
  1. PEGINTRON [Suspect]
     Dosage: (4SYR/PK) REDIPEN 150 MCG/0.5 ML SUBCUTANEOUSLY WEEKLY
     Route: 058
     Dates: start: 20130914
  2. RIBAPAK [Suspect]
     Dosage: UNK
  3. PRILOSEC [Concomitant]
     Dosage: UNK
     Route: 048
  4. WELLBUTRIN [Concomitant]
     Dosage: UNK
  5. VISTARIL [Concomitant]
     Dosage: UNK

REACTIONS (7)
  - Allodynia [Unknown]
  - Hot flush [Unknown]
  - Feeling cold [Unknown]
  - Arthralgia [Unknown]
  - Pyrexia [Unknown]
  - Fatigue [Unknown]
  - Decreased appetite [Unknown]
